FAERS Safety Report 8133772-3 (Version None)
Quarter: 2012Q1

REPORT INFORMATION
  Report Type: 
  Country: None (occurrence: None)
  Receive Date: 20120213
  Receipt Date: 20120213
  Transmission Date: 20120608
  Serious: No
  Sender: FDA-Public Use
  Company Number: None

PATIENT
  Sex: Male
  Weight: 77.11 kg

DRUGS (4)
  1. VIIBRYD [Suspect]
     Indication: DEPRESSION
     Dosage: 40 MG
     Route: 048
     Dates: start: 20110801, end: 20120210
  2. CRESTOR [Concomitant]
  3. AMBIEN [Concomitant]
  4. LAMOTRIGINE [Concomitant]

REACTIONS (1)
  - HALLUCINATIONS, MIXED [None]
